FAERS Safety Report 10065751 (Version 2)
Quarter: 2014Q2

REPORT INFORMATION
  Report Type: Report from Study
  Country: AR (occurrence: AR)
  Receive Date: 20140408
  Receipt Date: 20140516
  Transmission Date: 20141212
  Serious: Yes (Hospitalization)
  Sender: FDA-Public Use
  Company Number: AR-ABBVIE-14P-007-1220446-00

PATIENT
  Age: 64 Year
  Sex: Female

DRUGS (1)
  1. HUMIRA [Suspect]
     Indication: CROHN^S DISEASE
     Route: 058
     Dates: start: 20140213

REACTIONS (4)
  - Hypotension [Recovered/Resolved]
  - Proctitis [Unknown]
  - Pyrexia [Recovering/Resolving]
  - Unevaluable event [Recovered/Resolved]
